FAERS Safety Report 10147096 (Version 3)
Quarter: 2014Q2

REPORT INFORMATION
  Report Type: Report from Study
  Country: CA (occurrence: CA)
  Receive Date: 20140501
  Receipt Date: 20140604
  Transmission Date: 20141212
  Serious: Yes (Other)
  Sender: FDA-Public Use
  Company Number: CA-ELI_LILLY_AND_COMPANY-CA201304005417

PATIENT
  Age: 82 Year
  Sex: Female

DRUGS (7)
  1. TERIPARATIDE [Suspect]
     Indication: OSTEOPOROSIS
     Dosage: 20 UG, QD
     Route: 058
     Dates: start: 20130321
  2. ASA [Suspect]
     Indication: PRODUCT USED FOR UNKNOWN INDICATION
     Dosage: 80 MG, UNKNOWN
     Route: 065
  3. ASA [Suspect]
     Dosage: UNK
     Route: 065
     Dates: start: 20140411, end: 201404
  4. B12 [Concomitant]
     Dosage: UNK, UNKNOWN
     Route: 065
  5. DEMEROL [Concomitant]
     Dosage: UNK, UNKNOWN
     Route: 065
  6. TYLENOL                            /00020001/ [Concomitant]
     Indication: MYALGIA
     Dosage: UNK, UNKNOWN
     Route: 065
  7. AQUACEL [Concomitant]
     Indication: SKIN ULCER
     Dosage: UNK, UNKNOWN
     Route: 065

REACTIONS (4)
  - Deep vein thrombosis [Not Recovered/Not Resolved]
  - Tooth socket haemorrhage [Not Recovered/Not Resolved]
  - Fatigue [Not Recovered/Not Resolved]
  - Cough [Not Recovered/Not Resolved]
